FAERS Safety Report 6983928-8 (Version None)
Quarter: 2010Q3

REPORT INFORMATION
  Report Type: 
  Country: None (occurrence: None)
  Receive Date: 20100914
  Receipt Date: 20090715
  Transmission Date: 20110219
  Serious: Yes (Other)
  Sender: FDA-Public Use
  Company Number: US-WYE-H08848709

PATIENT
  Age: 57 Year
  Sex: Male
  Weight: 97.16 kg

DRUGS (11)
  1. PRISTIQ [Suspect]
     Indication: DEPRESSION
     Route: 048
     Dates: start: 20090318, end: 20090401
  2. PRISTIQ [Suspect]
     Route: 048
     Dates: start: 20090402, end: 20090404
  3. PRISTIQ [Suspect]
     Route: 048
     Dates: start: 20090406, end: 20090501
  4. PRISTIQ [Suspect]
     Route: 048
     Dates: start: 20090501
  5. PERCOCET [Concomitant]
     Indication: BACK PAIN
     Dosage: UNKNOWN
  6. PREVACID [Concomitant]
  7. TOPRAL [Concomitant]
     Indication: HYPERTENSION
     Dosage: UNKNOWN
  8. MICARDIS [Concomitant]
     Indication: HYPERTENSION
     Dosage: 40 MG, FREQUENCY UNKNOWN
     Dates: end: 20090101
  9. MICARDIS [Concomitant]
     Dosage: 80 MG, FREQUENCY UNKNOWN
     Dates: start: 20090101
  10. VALIUM [Concomitant]
     Dosage: UNKNOWN
  11. INSULIN [Concomitant]
     Indication: DIABETES MELLITUS
     Dosage: UNKNOWN

REACTIONS (18)
  - ARTHRALGIA [None]
  - BLOOD CHOLESTEROL INCREASED [None]
  - CONDITION AGGRAVATED [None]
  - DECREASED APPETITE [None]
  - DIZZINESS [None]
  - DRUG HYPERSENSITIVITY [None]
  - DRUG INEFFECTIVE [None]
  - DRUG WITHDRAWAL SYNDROME [None]
  - FAECAL INCONTINENCE [None]
  - FEELING JITTERY [None]
  - HEADACHE [None]
  - HYPERTENSION [None]
  - PHOTOPSIA [None]
  - RASH PRURITIC [None]
  - THIRST [None]
  - TREMOR [None]
  - URINARY INCONTINENCE [None]
  - WEIGHT DECREASED [None]
